FAERS Safety Report 9789356 (Version 2)
Quarter: 2014Q1

REPORT INFORMATION
  Report Type: Spontaneous
  Country: GB (occurrence: GB)
  Receive Date: 20131231
  Receipt Date: 20140211
  Transmission Date: 20141002
  Serious: Yes (Other)
  Sender: FDA-Public Use
  Company Number: GB-BAXTER-2013BAX052932

PATIENT
  Age: 4 Year
  Sex: Male
  Weight: 17.2 kg

DRUGS (1)
  1. KIOVIG 100 MG/ML SOLUTION FOR INFUSION [Suspect]
     Indication: PRIMARY IMMUNODEFICIENCY SYNDROME
     Route: 065
     Dates: start: 20131218

REACTIONS (3)
  - Pain [Recovered/Resolved]
  - Skin discolouration [Recovered/Resolved]
  - Body temperature increased [Recovered/Resolved]
